FAERS Safety Report 9128332 (Version 16)
Quarter: 2014Q4

REPORT INFORMATION
  Report Type: Spontaneous
  Country: US (occurrence: US)
  Receive Date: 20130228
  Receipt Date: 20141219
  Transmission Date: 20150529
  Serious: Yes (Hospitalization, Other)
  Sender: FDA-Public Use
  Company Number: US-GLAXOSMITHKLINE-A0810791A

PATIENT
  Age: 51 Year
  Sex: Female

DRUGS (23)
  1. IMITREX [Suspect]
     Active Substance: SUMATRIPTAN\SUMATRIPTAN SUCCINATE
     Indication: OCCIPITAL NEURALGIA
     Dosage: 6 MG/0.5 ML, DOSE ALSO REPORTED AS 4 MG
     Route: 058
     Dates: start: 200705
  2. IMITREX [Suspect]
     Active Substance: SUMATRIPTAN\SUMATRIPTAN SUCCINATE
     Dosage: UNK
  3. ZOFRAN [Suspect]
     Active Substance: ONDANSETRON HYDROCHLORIDE
     Indication: VOMITING
  4. CYMBALTA [Concomitant]
     Active Substance: DULOXETINE HYDROCHLORIDE
  5. FLEXERIL [Concomitant]
     Active Substance: CYCLOBENZAPRINE HYDROCHLORIDE
  6. TRAZODONE [Concomitant]
     Active Substance: TRAZODONE HYDROCHLORIDE
  7. LOPERAMIDE [Concomitant]
     Active Substance: LOPERAMIDE
  8. IMITREX [Suspect]
     Active Substance: SUMATRIPTAN\SUMATRIPTAN SUCCINATE
     Indication: MIGRAINE
     Dosage: UNK
     Dates: start: 200705
  9. IMITREX [Suspect]
     Active Substance: SUMATRIPTAN\SUMATRIPTAN SUCCINATE
     Indication: NERVOUS SYSTEM DISORDER
     Dosage: UNK
     Dates: start: 200705
  10. GABAPENTIN. [Concomitant]
     Active Substance: GABAPENTIN
  11. MULTIVITAMIN [Concomitant]
     Active Substance: VITAMINS
  12. IMITREX [Suspect]
     Active Substance: SUMATRIPTAN\SUMATRIPTAN SUCCINATE
     Dosage: UNK
  13. ZOFRAN [Suspect]
     Active Substance: ONDANSETRON HYDROCHLORIDE
     Indication: PROPHYLAXIS OF NAUSEA AND VOMITING
     Dosage: 8MG TABLETS
     Route: 065
     Dates: start: 20081209
  14. FORVIA [Concomitant]
  15. LOMOTIL [Concomitant]
     Active Substance: ATROPINE SULFATE\DIPHENOXYLATE HYDROCHLORIDE
  16. PRILOSEC [Concomitant]
     Active Substance: OMEPRAZOLE MAGNESIUM
  17. CLONAZEPAM. [Concomitant]
     Active Substance: CLONAZEPAM
  18. ZOFRAN [Suspect]
     Active Substance: ONDANSETRON HYDROCHLORIDE
     Indication: MIGRAINE
  19. FIORICET [Concomitant]
     Active Substance: ACETAMINOPHEN\BUTALBITAL\CAFFEINE
  20. IMITREX [Suspect]
     Active Substance: SUMATRIPTAN\SUMATRIPTAN SUCCINATE
     Indication: HEADACHE
     Dosage: UNK
     Dates: start: 200705
  21. ZOFRAN [Suspect]
     Active Substance: ONDANSETRON HYDROCHLORIDE
     Indication: NERVOUS SYSTEM DISORDER
  22. BUTALBITAL [Concomitant]
     Active Substance: BUTALBITAL
  23. REGLAN [Concomitant]
     Active Substance: METOCLOPRAMIDE HYDROCHLORIDE

REACTIONS (40)
  - Hepatitis [Unknown]
  - Brain operation [Unknown]
  - Nausea [Unknown]
  - Injection site pain [Recovered/Resolved]
  - Tumour excision [Unknown]
  - Malaise [Unknown]
  - Speech disorder [Unknown]
  - Brain neoplasm [Not Recovered/Not Resolved]
  - Headache [Unknown]
  - Toothache [Unknown]
  - Glossodynia [Unknown]
  - Brain tumour operation [Unknown]
  - Protein deficiency [Unknown]
  - Parotidectomy [Unknown]
  - Ear pain [Unknown]
  - Pain in jaw [Unknown]
  - Injection site haemorrhage [Recovered/Resolved]
  - Colitis [Unknown]
  - Headache [Not Recovered/Not Resolved]
  - Vomiting [Unknown]
  - Ill-defined disorder [Unknown]
  - Nervous system disorder [Unknown]
  - Visual impairment [Unknown]
  - Migraine [Not Recovered/Not Resolved]
  - Facial pain [Unknown]
  - Intestinal obstruction [Unknown]
  - Faecaloma [Unknown]
  - Bedridden [Not Recovered/Not Resolved]
  - Malaise [Not Recovered/Not Resolved]
  - Drug ineffective [Unknown]
  - Fibromyalgia [Unknown]
  - Adverse event [Unknown]
  - Neck pain [Unknown]
  - Back pain [Unknown]
  - Product quality issue [Unknown]
  - Memory impairment [Not Recovered/Not Resolved]
  - Salivary gland neoplasm [Unknown]
  - Initial insomnia [Unknown]
  - Oral pain [Unknown]
  - Procedural complication [Unknown]

NARRATIVE: CASE EVENT DATE: 2008
